FAERS Safety Report 12677723 (Version 2)
Quarter: 2016Q3

REPORT INFORMATION
  Report Type: Report from Study
  Country: HN (occurrence: HN)
  Receive Date: 20160823
  Receipt Date: 20160906
  Transmission Date: 20161109
  Serious: Yes (Other)
  Sender: FDA-Public Use
  Company Number: PHHY2016HN114362

PATIENT
  Age: 73 Year
  Sex: Male

DRUGS (2)
  1. ULTIBRO BREEZHALER [Suspect]
     Active Substance: GLYCOPYRRONIUM\INDACATEROL
     Indication: ASTHMA
  2. ULTIBRO BREEZHALER [Suspect]
     Active Substance: GLYCOPYRRONIUM\INDACATEROL
     Indication: LUNG DISORDER
     Dosage: 1 DF (50 UG OF GLYCOPYRRONIUM BROMIDE, 110 UG OF INDACATEROL), QD
     Route: 055

REACTIONS (6)
  - Petit mal epilepsy [Not Recovered/Not Resolved]
  - Headache [Unknown]
  - Malaise [Unknown]
  - Memory impairment [Unknown]
  - Blood cholesterol increased [Unknown]
  - Product use issue [Unknown]
